FAERS Safety Report 6818528-3 (Version None)
Quarter: 2010Q3

REPORT INFORMATION
  Report Type: 
  Country: None (occurrence: None)
  Receive Date: 20100706
  Receipt Date: 20080603
  Transmission Date: 20110219
  Serious: Yes (Hospitalization, Other)
  Sender: FDA-Public Use
  Company Number: US-PFIZER INC-2008042072

PATIENT
  Sex: Female

DRUGS (2)
  1. ZITHROMAX [Suspect]
     Indication: SINUSITIS
     Dates: start: 20080301, end: 20080101
  2. LEVAQUIN [Concomitant]

REACTIONS (3)
  - DEAFNESS [None]
  - DIZZINESS [None]
  - SYNCOPE [None]
